FAERS Safety Report 7580284-1 (Version None)
Quarter: 2011Q2

REPORT INFORMATION
  Report Type: 
  Country: None (occurrence: None)
  Receive Date: 20110527
  Receipt Date: 20101019
  Transmission Date: 20111010
  Serious: Yes (Other)
  Sender: FDA-Public Use
  Company Number: US200810007590

PATIENT
  Age: 68 Year
  Sex: Male
  Weight: 73.9 kg

DRUGS (14)
  1. EXENATIDE 5MCG PEN, DISPOSABLE DEVICE (EXENATIDE PEN (5MCG)) PEN,DISPO [Concomitant]
  2. LIPITOR [Concomitant]
  3. ENALAPRIL MALEATE [Concomitant]
  4. METFORMIN /00082702/ (METFORMIN HYDROCHLORIDE) [Concomitant]
  5. ASPIRIN [Concomitant]
  6. VITAMIN TAB [Concomitant]
  7. SOMA [Concomitant]
  8. EXENATIDE 10MCG PEN, DISPOSABLE DEVICE (EXENATIDE PEN (10MCG)) PEN,DIS [Concomitant]
  9. GLUCOVANCE (GLIBENCLAMDIE, METFORMIN HYDROCHLORIDE) [Concomitant]
  10. FLONASE [Concomitant]
  11. SIMVASTATIN [Concomitant]
  12. BACTRIM DS [Concomitant]
  13. BYETTA [Suspect]
     Indication: TYPE 2 DIABETES MELLITUS
     Dosage: SEE IMAGE
     Route: 058
     Dates: start: 20080601, end: 20080820
  14. BYETTA [Suspect]
     Indication: TYPE 2 DIABETES MELLITUS
     Dosage: SEE IMAGE
     Route: 058
     Dates: start: 20080501, end: 20080501

REACTIONS (8)
  - WEIGHT DECREASED [None]
  - DIVERTICULITIS [None]
  - LIPASE INCREASED [None]
  - DECREASED APPETITE [None]
  - LACERATION [None]
  - PANCREATITIS ACUTE [None]
  - NAUSEA [None]
  - MALAISE [None]
